FAERS Safety Report 6150369-5 (Version None)
Quarter: 2009Q2

REPORT INFORMATION
  Report Type: 
  Country: None (occurrence: None)
  Receive Date: 20090409
  Receipt Date: 20090326
  Transmission Date: 20091009
  Serious: Yes (Other)
  Sender: FDA-Public Use
  Company Number: MX-GENENTECH-280331

PATIENT
  Age: 13 Year
  Sex: Male

DRUGS (2)
  1. XOLAIR [Suspect]
     Indication: ASTHMA
     Dosage: 300 MG, UNK
  2. XOLAIR [Suspect]
     Dosage: 450 MG, UNK
     Dates: start: 20090324

REACTIONS (1)
  - RASH [None]
